FAERS Safety Report 19142824 (Version 1)
Quarter: 2021Q2

REPORT INFORMATION
  Report Type: Spontaneous
  Country: US (occurrence: US)
  Receive Date: 20210416
  Receipt Date: 20210416
  Transmission Date: 20210717
  Serious: No
  Sender: FDA-Public Use
  Company Number: US-TERSERA THERAPEUTICS LLC-2021TRS000126

PATIENT

DRUGS (3)
  1. XERMELO [Suspect]
     Active Substance: TELOTRISTAT ETHYL
     Dosage: 250 MG, TID (1 TABLET BY MOUTH 3 TIMES DAILY)
     Route: 048
  2. XERMELO [Suspect]
     Active Substance: TELOTRISTAT ETHYL
     Indication: CARCINOID TUMOUR
     Dosage: 250 MG, TID
     Route: 048
     Dates: start: 20200520
  3. XERMELO [Suspect]
     Active Substance: TELOTRISTAT ETHYL
     Dosage: 250 MG, ONCE OR TWICE A DAY
     Route: 048

REACTIONS (6)
  - Nausea [Not Recovered/Not Resolved]
  - Constipation [Unknown]
  - Feeding disorder [Unknown]
  - Adverse event [Unknown]
  - Treatment noncompliance [Unknown]
  - Malaise [Unknown]

NARRATIVE: CASE EVENT DATE: 20200626
